FAERS Safety Report 8983020 (Version 1)
Quarter: 2012Q4

REPORT INFORMATION
  Report Type: 
  Country: IE (occurrence: IE)
  Receive Date: 20121220
  Receipt Date: 20121220
  Transmission Date: 20130627
  Serious: Yes (Death, Other)
  Sender: FDA-Public Use
  Company Number: IE-AMGEN-IRLSP2012081712

PATIENT
  Age: 54 Year
  Sex: Female
  Weight: 127.4 kg

DRUGS (7)
  1. ENBREL [Suspect]
     Indication: PSORIASIS
     Dosage: 50 mg, 2x/week
     Route: 058
     Dates: start: 20050228, end: 20070322
  2. METHOTREXATE SODIUM [Suspect]
     Indication: PSORIASIS
     Dosage: 10-25mg once weekly
     Dates: start: 1999, end: 200504
  3. HUMIRA [Suspect]
     Indication: PSORIASIS
     Dosage: 40 mg, every 2 weeks
     Route: 058
     Dates: start: 20070419, end: 20100722
  4. CRESTOR [Concomitant]
     Indication: HYPERLIPIDAEMIA
     Dosage: 10 mg, UNK
  5. ELTROXIN [Concomitant]
     Indication: HYPOTHYROIDISM
     Dosage: 50 ug, UNK
  6. ACCURETIC [Concomitant]
     Indication: HYPERTENSION
     Dosage: 20 mg, UNK
  7. ACCURETIC [Concomitant]
     Dosage: 12.5 mg, UNK

REACTIONS (4)
  - Cervix cancer metastatic [Fatal]
  - Vaginal haemorrhage [Unknown]
  - Lower respiratory tract infection [Unknown]
  - Psoriasis [Unknown]
